FAERS Safety Report 14771606 (Version 1)
Quarter: 2018Q2

REPORT INFORMATION
  Report Type: Spontaneous
  Country: US (occurrence: US)
  Receive Date: 20180417
  Receipt Date: 20180417
  Transmission Date: 20180711
  Serious: No
  Sender: FDA-Public Use
  Company Number: US-ALLERGAN-1801606US

PATIENT
  Sex: Female

DRUGS (1)
  1. LATISSE [Suspect]
     Active Substance: BIMATOPROST
     Indication: GROWTH OF EYELASHES
     Dosage: 2 GTT, UNK
     Route: 061

REACTIONS (4)
  - Madarosis [Not Recovered/Not Resolved]
  - Eyelash discolouration [Not Recovered/Not Resolved]
  - Eyelash thickening [Not Recovered/Not Resolved]
  - Therapeutic response decreased [Unknown]
